FAERS Safety Report 6234518-6 (Version None)
Quarter: 2009Q2

REPORT INFORMATION
  Report Type: 
  Country: None (occurrence: None)
  Receive Date: 20090618
  Receipt Date: 20090123
  Transmission Date: 20091009
  Serious: No
  Sender: FDA-Public Use
  Company Number: US-BRISTOL-MYERS SQUIBB COMPANY-14483820

PATIENT

DRUGS (1)
  1. SINEMET [Suspect]
     Dosage: 1 DF= 1 TABLET

REACTIONS (2)
  - HALLUCINATION [None]
  - OVERDOSE [None]
